FAERS Safety Report 8533743-9 (Version None)
Quarter: 2012Q3

REPORT INFORMATION
  Report Type: 
  Country: None (occurrence: None)
  Receive Date: 20120724
  Receipt Date: 20120717
  Transmission Date: 20120928
  Serious: Yes (Death)
  Sender: FDA-Public Use
  Company Number: GB-UCBSA-062247

PATIENT
  Sex: Female
  Weight: 68 kg

DRUGS (1)
  1. CIMZIA [Suspect]
     Indication: RHEUMATOID ARTHRITIS
     Route: 058
     Dates: start: 20110510

REACTIONS (3)
  - ABDOMINAL ABSCESS [None]
  - MULTI-ORGAN FAILURE [None]
  - DIVERTICULUM [None]
